FAERS Safety Report 9580915 (Version 1)
Quarter: 2013Q4

REPORT INFORMATION
  Report Type: Spontaneous
  Country: US (occurrence: US)
  Receive Date: 20131002
  Receipt Date: 20131002
  Transmission Date: 20140711
  Serious: Yes (Other)
  Sender: FDA-Public Use
  Company Number: US-PFIZER INC-2013279573

PATIENT
  Sex: Female

DRUGS (3)
  1. DILANTIN [Suspect]
     Dosage: 260 MG
  2. DILANTIN [Suspect]
     Dosage: 230 MG
  3. DILANTIN [Suspect]
     Dosage: 200 MG

REACTIONS (1)
  - Drug ineffective [Unknown]
